FAERS Safety Report 5237844-2 (Version None)
Quarter: 2007Q1

REPORT INFORMATION
  Report Type: 
  Country: None (occurrence: None)
  Receive Date: 20070214
  Receipt Date: 20070201
  Transmission Date: 20070707
  Serious: Yes (Hospitalization)
  Sender: FDA-Public Use
  Company Number: PHBS2007ZA00906

PATIENT
  Age: 48 Year
  Sex: Female

DRUGS (1)
  1. GLEEVEC [Suspect]
     Indication: CHRONIC MYELOID LEUKAEMIA
     Dosage: 400 MG/DAY
     Dates: start: 20060501, end: 20061001

REACTIONS (6)
  - HYPERKERATOSIS [None]
  - LICHEN PLANUS [None]
  - PARAKERATOSIS [None]
  - PRURITUS [None]
  - RASH [None]
  - SKIN EXFOLIATION [None]
